FAERS Safety Report 5814607-8 (Version None)
Quarter: 2008Q3

REPORT INFORMATION
  Report Type: 
  Country: None (occurrence: None)
  Receive Date: 20080718
  Receipt Date: 20080501
  Transmission Date: 20090109
  Serious: No
  Sender: FDA-Public Use
  Company Number: US-KINGPHARMUSA00001-K200800506

PATIENT

DRUGS (3)
  1. LEVOXYL [Suspect]
     Indication: THYROID DISORDER
     Dosage: 50 MCG, QD
     Route: 048
     Dates: start: 20030101, end: 20080430
  2. LEVOXYL [Suspect]
     Dosage: ^1 GRAIN ^
  3. HERBALS NOS W/VITAMINS NOS [Concomitant]
     Indication: ROUTINE HEALTH MAINTENANCE
     Dosage: UNK, UNK
     Route: 048

REACTIONS (3)
  - ASTHENIA [None]
  - HEADACHE [None]
  - MUSCULAR WEAKNESS [None]
